FAERS Safety Report 4654810-6 (Version None)
Quarter: 2005Q2

REPORT INFORMATION
  Report Type: 
  Country: None (occurrence: None)
  Receive Date: 20050505
  Receipt Date: 20050505
  Transmission Date: 20051028
  Serious: Yes (Death)
  Sender: FDA-Public Use
  Company Number: None

PATIENT
  Age: 77 Year
  Sex: Female
  Weight: 69.8 kg

DRUGS (10)
  1. CLOPIDOGREL    75MG [Suspect]
     Dosage: 75 MG   DAILY   ORAL
     Route: 048
     Dates: start: 20050423, end: 20050504
  2. HEPARIN     1000 UNITS [Suspect]
     Dosage: 1000 UNITS   HOURLY   INTRAVENOU
     Route: 042
     Dates: start: 20050503, end: 20050503
  3. ASPIRIN [Concomitant]
  4. ISOSORBIDE [Concomitant]
  5. COLACE [Concomitant]
  6. ARICEPT [Concomitant]
  7. NAMEDA [Concomitant]
  8. PRAVACHOL [Concomitant]
  9. FAMOTIDINE [Concomitant]
  10. FOSAMAX [Concomitant]

REACTIONS (2)
  - BRAIN HERNIATION [None]
  - CEREBRAL HAEMORRHAGE [None]
